FAERS Safety Report 20789078 (Version 1)
Quarter: 2022Q2

REPORT INFORMATION
  Report Type: Spontaneous
  Country: US (occurrence: None)
  Receive Date: 20220504
  Receipt Date: 20220504
  Transmission Date: 20220720
  Serious: Yes (Hospitalization)
  Sender: FDA-Public Use
  Company Number: None

PATIENT
  Sex: Female

DRUGS (1)
  1. PROLIA [Suspect]
     Active Substance: DENOSUMAB
     Indication: Osteoporosis
     Dosage: OTHER FREQUENCY : EVERY 6 MONTHS;?
     Route: 058
     Dates: start: 20211213

REACTIONS (7)
  - Muscle twitching [None]
  - Muscle spasms [None]
  - Diarrhoea [None]
  - Abdominal discomfort [None]
  - Blood urine present [None]
  - Abdominal distension [None]
  - Ileus paralytic [None]
